FAERS Safety Report 13324907 (Version 2)
Quarter: 2017Q2

REPORT INFORMATION
  Report Type: Spontaneous
  Country: US (occurrence: US)
  Receive Date: 20170310
  Receipt Date: 20170609
  Transmission Date: 20170830
  Serious: No
  Sender: FDA-Public Use
  Company Number: US-009507513-1702USA010290

PATIENT
  Age: 26 Year
  Sex: Female
  Weight: 58.05 kg

DRUGS (2)
  1. NEXPLANON [Suspect]
     Active Substance: ETONOGESTREL
     Dosage: 1 ROD EVERY 3 YERAS
     Route: 023
     Dates: start: 20170222, end: 20170222
  2. NEXPLANON [Suspect]
     Active Substance: ETONOGESTREL
     Dosage: 1 ROD EVERY 3 YERAS
     Route: 059
     Dates: start: 2017

REACTIONS (5)
  - Drug administration error [Unknown]
  - Complication of device insertion [Recovered/Resolved]
  - Device malfunction [Unknown]
  - Device deployment issue [Recovered/Resolved]
  - Incorrect route of drug administration [Unknown]

NARRATIVE: CASE EVENT DATE: 20170222
